FAERS Safety Report 15907383 (Version 1)
Quarter: 2019Q1

REPORT INFORMATION
  Report Type: Spontaneous
  Country: CN (occurrence: CN)
  Receive Date: 20190204
  Receipt Date: 20190204
  Transmission Date: 20190417
  Serious: Yes (Death, Hospitalization, Other)
  Sender: FDA-Public Use
  Company Number: CN-ASTRAZENECA-2019SE19452

PATIENT
  Age: 67 Year

DRUGS (1)
  1. SYMBICORT [Suspect]
     Active Substance: BUDESONIDE\FORMOTEROL FUMARATE DIHYDRATE
     Indication: COR PULMONALE
     Dosage: 160UG /4.5UG, TWO TIMES A DAY, 2 INHALATION AT A TIME
     Route: 055

REACTIONS (4)
  - Drug ineffective [Unknown]
  - Disease progression [Fatal]
  - Device issue [Unknown]
  - Cardiac disorder [Unknown]
